FAERS Safety Report 19779605 (Version 6)
Quarter: 2023Q1

REPORT INFORMATION
  Report Type: Spontaneous
  Country: US (occurrence: US)
  Receive Date: 20210902
  Receipt Date: 20230215
  Transmission Date: 20230418
  Serious: Yes (Other)
  Sender: FDA-Public Use
  Company Number: US-PFIZER INC-202101131270

PATIENT
  Age: 30 Year
  Sex: Male

DRUGS (2)
  1. XELJANZ [Suspect]
     Active Substance: TOFACITINIB CITRATE
     Indication: Rheumatoid arthritis
     Dosage: 5 MG, 2X/DAY
     Route: 048
     Dates: start: 2020
  2. XELJANZ [Suspect]
     Active Substance: TOFACITINIB CITRATE
     Dosage: 5 MG, 2X/DAY
     Route: 048
     Dates: start: 202106

REACTIONS (11)
  - Streptococcal infection [Unknown]
  - Pneumonia [Unknown]
  - Drug ineffective [Unknown]
  - Product dose omission issue [Unknown]
  - Sensory disturbance [Unknown]
  - Condition aggravated [Unknown]
  - Pain [Unknown]
  - Joint swelling [Unknown]
  - COVID-19 [Unknown]
  - Influenza [Unknown]
  - Arthralgia [Not Recovered/Not Resolved]

NARRATIVE: CASE EVENT DATE: 20210101
